FAERS Safety Report 24085744 (Version 1)
Quarter: 2024Q3

REPORT INFORMATION
  Report Type: Spontaneous
  Country: US (occurrence: US)
  Receive Date: 20240712
  Receipt Date: 20240712
  Transmission Date: 20241017
  Serious: Yes (Other)
  Sender: PFIZER
  Company Number: US-PFIZER INC-PV202400090324

PATIENT
  Sex: Male

DRUGS (14)
  1. DOXORUBICIN HYDROCHLORIDE [Suspect]
     Active Substance: DOXORUBICIN HYDROCHLORIDE
     Indication: Desmoid tumour
     Dosage: UNK
  2. DOXORUBICIN HYDROCHLORIDE [Suspect]
     Active Substance: DOXORUBICIN HYDROCHLORIDE
     Indication: Disease recurrence
  3. METHOTREXATE SODIUM [Suspect]
     Active Substance: METHOTREXATE SODIUM
     Indication: Desmoid tumour
     Dosage: UNK
  4. METHOTREXATE SODIUM [Suspect]
     Active Substance: METHOTREXATE SODIUM
     Indication: Disease recurrence
  5. IMATINIB [Suspect]
     Active Substance: IMATINIB
     Indication: Desmoid tumour
     Dosage: UNK
  6. IMATINIB [Suspect]
     Active Substance: IMATINIB
     Indication: Disease recurrence
  7. NIROGACESTAT [Suspect]
     Active Substance: NIROGACESTAT
     Indication: Desmoid tumour
     Dosage: UNK
  8. NIROGACESTAT [Suspect]
     Active Substance: NIROGACESTAT
     Indication: Disease recurrence
  9. PAZOPANIB [Suspect]
     Active Substance: PAZOPANIB
     Indication: Desmoid tumour
     Dosage: UNK
  10. PAZOPANIB [Suspect]
     Active Substance: PAZOPANIB
     Indication: Disease recurrence
  11. SORAFENIB [Suspect]
     Active Substance: SORAFENIB
     Indication: Desmoid tumour
     Dosage: UNK
  12. SORAFENIB [Suspect]
     Active Substance: SORAFENIB
     Indication: Disease recurrence
  13. VINBLASTINE [Suspect]
     Active Substance: VINBLASTINE
     Indication: Desmoid tumour
     Dosage: UNK
  14. VINBLASTINE [Suspect]
     Active Substance: VINBLASTINE
     Indication: Disease recurrence

REACTIONS (3)
  - Drug ineffective for unapproved indication [Unknown]
  - Neoplasm progression [Unknown]
  - Off label use [Unknown]
